FAERS Safety Report 14034317 (Version 1)
Quarter: 2017Q4

REPORT INFORMATION
  Report Type: Spontaneous
  Country: FR (occurrence: FR)
  Receive Date: 20171003
  Receipt Date: 20171003
  Transmission Date: 20180321
  Serious: Yes (Hospitalization)
  Sender: FDA-Public Use
  Company Number: FR-TEVA-810205ROM

PATIENT
  Age: 58 Year
  Sex: Female
  Weight: 55 kg

DRUGS (4)
  1. DOXORUBICINE CHLORHYDRATE TEVA [Suspect]
     Active Substance: DOXORUBICIN
     Indication: DIFFUSE LARGE B-CELL LYMPHOMA STAGE IV
     Dosage: 83 MILLIGRAM DAILY; FIRST COURSE OF CHEMOTHERAPY
     Route: 041
     Dates: start: 20161026, end: 20161026
  2. MABTHERA [Suspect]
     Active Substance: RITUXIMAB
     Indication: DIFFUSE LARGE B-CELL LYMPHOMA STAGE IV
     Dosage: 620 MILLIGRAM DAILY; EXACT FORM: CONCENTRATE FOR SOLUTION FOR INFUSION. FIRST COURSE OF CHEMOTHERAPY
     Route: 041
     Dates: start: 20161026, end: 20161026
  3. VINCRISTINE HOSPIRA 2 MG/ 2 ML [Suspect]
     Active Substance: VINCRISTINE
     Indication: DIFFUSE LARGE B-CELL LYMPHOMA STAGE IV
     Dosage: 2 MILLIGRAM DAILY; FIRST COURSE OF CHEMOTHERAPY
     Route: 041
     Dates: start: 20161026, end: 20161026
  4. ENDOXAN [Suspect]
     Active Substance: CYCLOPHOSPHAMIDE
     Indication: DIFFUSE LARGE B-CELL LYMPHOMA STAGE IV
     Dosage: 1250 MILLIGRAM DAILY; FIRST COURSE OF CHEMOTHERAPY
     Route: 041
     Dates: start: 20161026, end: 20161026

REACTIONS (5)
  - Hyperthermia [Recovered/Resolved]
  - Tumour lysis syndrome [Recovered/Resolved]
  - Blood calcium decreased [None]
  - Blood phosphorus decreased [None]
  - Blood uric acid increased [None]

NARRATIVE: CASE EVENT DATE: 20161028
